FAERS Safety Report 11547911 (Version 1)
Quarter: 2015Q3

REPORT INFORMATION
  Report Type: Spontaneous
  Country: US (occurrence: US)
  Receive Date: 20150924
  Receipt Date: 20150924
  Transmission Date: 20151125
  Serious: No
  Sender: FDA-Public Use
  Company Number: US-AMNEAL PHARMACEUTICALS-2015AMN00048

PATIENT
  Age: 42 Year
  Sex: Female
  Weight: 58.96 kg

DRUGS (1)
  1. GABAPENTIN. [Suspect]
     Active Substance: GABAPENTIN
     Indication: BIPOLAR DISORDER
     Dosage: 7 CAPSULES, 1X/DAY
     Route: 048
     Dates: start: 2000

REACTIONS (13)
  - Depression [Recovered/Resolved]
  - Weight increased [Recovered/Resolved]
  - Off label use [Not Recovered/Not Resolved]
  - Hypomania [Recovered/Resolved]
  - Discomfort [Recovered/Resolved]
  - Suicidal ideation [Recovered/Resolved]
  - Anxiety [Recovered/Resolved]
  - Palpitations [Recovered/Resolved]
  - Alopecia [Recovered/Resolved]
  - Energy increased [Recovered/Resolved]
  - Somnolence [Recovered/Resolved]
  - Cardiac flutter [Recovered/Resolved]
  - Asthenia [Recovered/Resolved]

NARRATIVE: CASE EVENT DATE: 2007
